FAERS Safety Report 6226062-7 (Version None)
Quarter: 2009Q2

REPORT INFORMATION
  Report Type: 
  Country: None (occurrence: None)
  Receive Date: 20090612
  Receipt Date: 20090505
  Transmission Date: 20091009
  Serious: No
  Sender: FDA-Public Use
  Company Number: US-ABBOTT-09P-163-0571946-00

PATIENT
  Sex: Female
  Weight: 53.572 kg

DRUGS (1)
  1. HUMIRA [Suspect]
     Indication: RHEUMATOID ARTHRITIS
     Route: 058
     Dates: start: 20010101, end: 20090129

REACTIONS (8)
  - HERPES ZOSTER [None]
  - LIPOMA [None]
  - MOBILITY DECREASED [None]
  - MUSCULOSKELETAL STIFFNESS [None]
  - PAIN [None]
  - PAIN IN EXTREMITY [None]
  - PULMONARY MASS [None]
  - RASH [None]
